FAERS Safety Report 4377323-8 (Version None)
Quarter: 2004Q2

REPORT INFORMATION
  Report Type: 
  Country: None (occurrence: None)
  Receive Date: 20040609
  Receipt Date: 20040414
  Transmission Date: 20050107
  Serious: No
  Sender: FDA-Public Use
  Company Number: 2004209453US

PATIENT
  Age: 67 Year
  Sex: Female

DRUGS (3)
  1. BEXTRA [Suspect]
     Indication: ARTHROPATHY
     Dosage: 20 MG, QD
     Dates: start: 20040413
  2. PREMARIN [Concomitant]
  3. VITAMIN C AND E [Concomitant]

REACTIONS (2)
  - NASOPHARYNGITIS [None]
  - PHARYNGITIS [None]
